FAERS Safety Report 5946859-8 (Version None)
Quarter: 2008Q4

REPORT INFORMATION
  Report Type: 
  Country: None (occurrence: None)
  Receive Date: 20081107
  Receipt Date: 20081107
  Transmission Date: 20090506
  Serious: Yes (Disabling)
  Sender: FDA-Public Use
  Company Number: None

PATIENT
  Sex: Female

DRUGS (2)
  1. ENABLEX [Suspect]
     Indication: HYPERTONIC BLADDER
     Dosage: 7.5 MG DAILY 047 (ORAL)
     Route: 048
     Dates: start: 20080610, end: 20080612
  2. ENABLEX [Suspect]
     Indication: NOCTURIA
     Dosage: 7.5 MG DAILY 047 (ORAL)
     Route: 048
     Dates: start: 20080610, end: 20080612

REACTIONS (6)
  - BLINDNESS [None]
  - DRY EYE [None]
  - DRY MOUTH [None]
  - EYE PAIN [None]
  - OPTIC ISCHAEMIC NEUROPATHY [None]
  - OPTIC NEURITIS [None]
